FAERS Safety Report 8607306 (Version 6)
Quarter: 2013Q2

REPORT INFORMATION
  Report Type: Spontaneous
  Country: NO (occurrence: NO)
  Receive Date: 20120611
  Receipt Date: 20130423
  Transmission Date: 20140414
  Serious: Yes (Hospitalization, Disabling, Other)
  Sender: FDA-Public Use
  Company Number: NO-JNJFOC-20120600572

PATIENT
  Age: 50 Year
  Sex: Male

DRUGS (12)
  1. REMICADE [Suspect]
     Indication: ANKYLOSING SPONDYLITIS
     Route: 042
     Dates: start: 20110608, end: 201106
  2. REMICADE [Suspect]
     Indication: ANKYLOSING SPONDYLITIS
     Route: 042
     Dates: start: 2008
  3. ZOCOR [Suspect]
     Indication: PRODUCT USED FOR UNKNOWN INDICATION
     Route: 048
     Dates: start: 201106
  4. PENTASA [Concomitant]
     Route: 065
     Dates: start: 201106
  5. ATACAND [Concomitant]
     Route: 065
     Dates: start: 201106
  6. ALL OTHER MEDICATIONS [Concomitant]
     Route: 065
  7. LOPERAMID [Concomitant]
     Route: 065
  8. PARACET [Concomitant]
     Route: 065
  9. PARALGIN FORTE [Concomitant]
     Route: 065
  10. SELO-ZOK [Concomitant]
     Route: 065
     Dates: start: 201106
  11. ALBYL-E [Concomitant]
     Route: 065
     Dates: start: 201106
  12. FURIX [Concomitant]
     Route: 065
     Dates: start: 201106

REACTIONS (9)
  - Aortic valve incompetence [Unknown]
  - Cardiac failure [Unknown]
  - Dilatation ventricular [Not Recovered/Not Resolved]
  - Coronary artery stenosis [Unknown]
  - Atrial fibrillation [Unknown]
  - Intestinal stenosis [Unknown]
  - Subileus [Unknown]
  - Pulmonary congestion [Not Recovered/Not Resolved]
  - Anastomotic stenosis [Not Recovered/Not Resolved]
